FAERS Safety Report 8180681-X (Version None)
Quarter: 2012Q1

REPORT INFORMATION
  Report Type: 
  Country: None (occurrence: None)
  Receive Date: 20120302
  Receipt Date: 20120228
  Transmission Date: 20120608
  Serious: Yes (Life-Threatening, Hospitalization, Other)
  Sender: FDA-Public Use
  Company Number: FR-ABBOTT-11P-056-0729875-00

PATIENT
  Sex: Male

DRUGS (13)
  1. DIAMICRON [Suspect]
     Indication: PAIN
     Route: 048
     Dates: end: 20100330
  2. MINIRIN [Suspect]
     Indication: DIABETES INSIPIDUS
     Route: 048
     Dates: start: 19950101
  3. ACTOS [Suspect]
     Indication: TYPE 2 DIABETES MELLITUS
     Route: 048
     Dates: start: 20060301, end: 20100201
  4. ALLOPURINOL [Suspect]
     Indication: HYPERURICAEMIA
     Route: 048
  5. PERINDOPRIL ERBUMINE [Suspect]
     Indication: CONGESTIVE CARDIOMYOPATHY
     Dosage: 100 MCG THRICE
     Route: 048
     Dates: start: 19991201
  6. VICTOZA [Concomitant]
     Indication: TYPE 2 DIABETES MELLITUS
     Route: 048
  7. JANUVIA [Suspect]
     Indication: TYPE 2 DIABETES MELLITUS
     Route: 048
     Dates: start: 20091001
  8. PRAZOSIN HCL [Suspect]
     Indication: HYPERTENSION
     Route: 048
     Dates: end: 20100201
  9. BISOPROLOL FUMARATE [Suspect]
     Indication: CONGESTIVE CARDIOMYOPATHY
     Route: 048
     Dates: start: 20091201
  10. FENOFIBRATE [Suspect]
     Indication: HYPERTRIGLYCERIDAEMIA
     Route: 048
  11. METFORMIN HCL [Concomitant]
     Indication: TYPE 2 DIABETES MELLITUS
     Route: 048
  12. ASPIRIN [Suspect]
     Indication: CONGESTIVE CARDIOMYOPATHY
     Route: 048
     Dates: start: 19991201
  13. KAYEXALATE [Suspect]
     Indication: HYPERKALAEMIA
     Route: 048
     Dates: start: 20100501

REACTIONS (5)
  - APPENDICITIS [None]
  - BLADDER CANCER STAGE II [None]
  - CARDIOMYOPATHY [None]
  - INFECTIOUS PERITONITIS [None]
  - CARDIAC FAILURE [None]
